FAERS Safety Report 14966768 (Version 1)
Quarter: 2018Q2

REPORT INFORMATION
  Report Type: Spontaneous
  Country: FI (occurrence: FI)
  Receive Date: 20180604
  Receipt Date: 20180604
  Transmission Date: 20180711
  Serious: No
  Sender: FDA-Public Use
  Company Number: FI-CHEPLA-1915907

PATIENT
  Age: 47 Year
  Sex: Female

DRUGS (4)
  1. SERTRALINE [Suspect]
     Active Substance: SERTRALINE HYDROCHLORIDE
     Indication: DEPRESSION
     Route: 065
  2. XENICAL [Suspect]
     Active Substance: ORLISTAT
     Indication: WEIGHT DECREASED
     Dosage: 120 MG 3-4 TIMES DAILY
     Route: 065
     Dates: start: 201703
  3. ENALAPRIL [Concomitant]
     Active Substance: ENALAPRIL
     Route: 065
  4. TRIPTYL [Suspect]
     Active Substance: AMITRIPTYLINE HYDROCHLORIDE
     Dosage: MAX DOSE 300 MG
     Route: 065

REACTIONS (2)
  - Drug ineffective [Unknown]
  - Steatorrhoea [Recovered/Resolved]

NARRATIVE: CASE EVENT DATE: 201704
